FAERS Safety Report 11700234 (Version 2)
Quarter: 2015Q4

REPORT INFORMATION
  Report Type: Spontaneous
  Country: US (occurrence: US)
  Receive Date: 20151105
  Receipt Date: 20151106
  Transmission Date: 20160304
  Serious: No
  Sender: FDA-Public Use
  Company Number: US-PFIZER INC-2015342257

PATIENT
  Age: 75 Year
  Sex: Female
  Weight: 74 kg

DRUGS (1)
  1. IBRANCE [Suspect]
     Active Substance: PALBOCICLIB
     Indication: BREAST CANCER
     Dosage: 75 MG (1 CAPSULE), ONCE DAILY, CYCLIC (21 DAYS ON AND 7 DAYS OFF) (DAY 1-21 Q 28 DAYS)
     Route: 048
     Dates: start: 20150928

REACTIONS (2)
  - Abdominal pain lower [Unknown]
  - Diarrhoea [Recovered/Resolved]

NARRATIVE: CASE EVENT DATE: 20151009
